FAERS Safety Report 18355313 (Version 4)
Quarter: 2021Q2

REPORT INFORMATION
  Report Type: Spontaneous
  Country: US (occurrence: US)
  Receive Date: 20201007
  Receipt Date: 20210629
  Transmission Date: 20210717
  Serious: No
  Sender: FDA-Public Use
  Company Number: US-VERTEX PHARMACEUTICALS-2020-019483

PATIENT
  Age: 20 Year
  Sex: Female

DRUGS (11)
  1. TRIKAFTA [Suspect]
     Active Substance: ELEXACAFTOR\IVACAFTOR\TEZACAFTOR
     Indication: CYSTIC FIBROSIS
     Dosage: 2 ORANGE TABS AM, 1 BLUE TAB PM
     Route: 048
     Dates: start: 201911
  2. AZITHROMYCIN ANHYDROUS. [Concomitant]
     Active Substance: AZITHROMYCIN ANHYDROUS
     Dosage: UNK
  3. VITAMIN B [Concomitant]
     Active Substance: VITAMIN B
     Dosage: UNK
  4. FEXOFENADINE [Concomitant]
     Active Substance: FEXOFENADINE HYDROCHLORIDE
     Dosage: UNK
  5. MYORISAN [Concomitant]
     Active Substance: ISOTRETINOIN
     Dosage: UNK
  6. TRIKAFTA [Suspect]
     Active Substance: ELEXACAFTOR\IVACAFTOR\TEZACAFTOR
     Dosage: 100MG ELEXA/50MG TEZA/75MG IVA; 150MG IVA (1 WEEK ON, 2 WEEKS OFF)
     Route: 048
     Dates: start: 20201204
  7. ALBUTEROL [SALBUTAMOL] [Concomitant]
     Active Substance: ALBUTEROL
     Dosage: UNK
  8. DULERA [Concomitant]
     Active Substance: FORMOTEROL FUMARATE DIHYDRATE\MOMETASONE FUROATE
     Dosage: UNK
  9. VITAMIN E [Concomitant]
     Active Substance: .ALPHA.-TOCOPHEROL
     Dosage: UNK
  10. CLONIDINE. [Concomitant]
     Active Substance: CLONIDINE
     Dosage: UNK
  11. SUDAFED [XYLOMETAZOLINE HYDROCHLORIDE] [Concomitant]
     Active Substance: XYLOMETAZOLINE HYDROCHLORIDE
     Dosage: UNK

REACTIONS (5)
  - Rash papular [Not Recovered/Not Resolved]
  - Alopecia [Not Recovered/Not Resolved]
  - Guttate psoriasis [Recovering/Resolving]
  - Rash pruritic [Not Recovered/Not Resolved]
  - Exfoliative rash [Not Recovered/Not Resolved]

NARRATIVE: CASE EVENT DATE: 202008
